FAERS Safety Report 15969672 (Version 3)
Quarter: 2021Q2

REPORT INFORMATION
  Report Type: Spontaneous
  Country: US (occurrence: US)
  Receive Date: 20190215
  Receipt Date: 20210629
  Transmission Date: 20210716
  Serious: Yes (Death, Hospitalization, Other)
  Sender: FDA-Public Use
  Company Number: PHEH2018US056000

PATIENT
  Sex: Female

DRUGS (1)
  1. TASIGNA [Suspect]
     Active Substance: NILOTINIB
     Indication: CHRONIC MYELOID LEUKAEMIA
     Route: 065
     Dates: start: 20111011, end: 20180515

REACTIONS (29)
  - Haemorrhage intracranial [Unknown]
  - Neck pain [Unknown]
  - Headache [Unknown]
  - Arterial insufficiency [Unknown]
  - Coronary artery disease [Unknown]
  - Hypertension [Unknown]
  - Intermittent claudication [Unknown]
  - Cellulitis [Unknown]
  - Cervical spinal stenosis [Unknown]
  - Groin infection [Unknown]
  - Arteriosclerosis [Unknown]
  - Retroperitoneal haematoma [Unknown]
  - Cerebrovascular accident [Unknown]
  - Hypoaesthesia [Unknown]
  - Myocardial infarction [Fatal]
  - Peripheral arterial occlusive disease [Unknown]
  - Arrhythmia [Unknown]
  - Skin ulcer [Unknown]
  - Chest pain [Unknown]
  - Anxiety [Unknown]
  - Emotional distress [Unknown]
  - Peripheral artery stenosis [Unknown]
  - Intervertebral disc degeneration [Unknown]
  - Carpal tunnel syndrome [Unknown]
  - Trigeminal neuralgia [Unknown]
  - Peripheral vascular disorder [Unknown]
  - Injury [Unknown]
  - Pain in extremity [Unknown]
  - Pain [Unknown]

NARRATIVE: CASE EVENT DATE: 2013
